FAERS Safety Report 19059002 (Version 1)
Quarter: 2021Q1

REPORT INFORMATION
  Report Type: Spontaneous
  Country: DE (occurrence: DE)
  Receive Date: 20210325
  Receipt Date: 20210325
  Transmission Date: 20210420
  Serious: Yes (Other)
  Sender: FDA-Public Use
  Company Number: DE-TEVA-2021-DE-1892580

PATIENT
  Sex: Female

DRUGS (2)
  1. KORTISON [Concomitant]
     Active Substance: CORTISONE ACETATE
     Indication: PNEUMONITIS
     Dates: start: 202001
  2. LEVOFLOXACIN. [Suspect]
     Active Substance: LEVOFLOXACIN
     Indication: PNEUMONITIS
     Dates: start: 202001

REACTIONS (19)
  - Musculoskeletal discomfort [Unknown]
  - Impaired quality of life [Unknown]
  - Impaired work ability [Unknown]
  - Condition aggravated [Unknown]
  - Lipoedema [Unknown]
  - Peripheral swelling [Unknown]
  - Adverse reaction [Unknown]
  - Impaired work ability [Not Recovered/Not Resolved]
  - Weight increased [Unknown]
  - Joint swelling [Unknown]
  - Gait disturbance [Unknown]
  - Limb injury [Unknown]
  - Arthritis [Unknown]
  - Mobility decreased [Unknown]
  - Hypertension [Unknown]
  - Weight bearing difficulty [Unknown]
  - Fatigue [Unknown]
  - Abdominal pain lower [Unknown]
  - Swelling [Unknown]

NARRATIVE: CASE EVENT DATE: 2020
